FAERS Safety Report 17243692 (Version 1)
Quarter: 2020Q1

REPORT INFORMATION
  Report Type: Spontaneous
  Country: US (occurrence: US)
  Receive Date: 20200107
  Receipt Date: 20200107
  Transmission Date: 20200409
  Serious: No
  Sender: FDA-Public Use
  Company Number: US-ROCHE-2252556

PATIENT
  Age: 87 Year
  Sex: Female
  Weight: 72 kg

DRUGS (2)
  1. ACTIVASE [Suspect]
     Active Substance: ALTEPLASE
     Dosage: OVER 60 MIN X 1
     Route: 040
     Dates: start: 20190121, end: 20190121
  2. ACTIVASE [Suspect]
     Active Substance: ALTEPLASE
     Indication: CEREBROVASCULAR ACCIDENT
     Dosage: (PACKAGE 100 MG/WEIGHT BASED DOSE)
     Route: 040
     Dates: start: 20190121, end: 20190121

REACTIONS (1)
  - Epistaxis [Unknown]

NARRATIVE: CASE EVENT DATE: 20190121
